FAERS Safety Report 5803588-9 (Version None)
Quarter: 2008Q3

REPORT INFORMATION
  Report Type: 
  Country: None (occurrence: None)
  Receive Date: 20080703
  Receipt Date: 20080619
  Transmission Date: 20090109
  Serious: Yes (Hospitalization)
  Sender: FDA-Public Use
  Company Number: 2007EU001144

PATIENT
  Age: 62 Year
  Sex: Male

DRUGS (1)
  1. TACROLIMUS [Suspect]
     Indication: LIVER TRANSPLANT
     Dosage: 8 MG, UNKNOWN/D, ORAL
     Route: 048
     Dates: start: 20070504

REACTIONS (3)
  - BILIARY ANASTOMOSIS COMPLICATION [None]
  - CHOLANGITIS [None]
  - TRANSPLANT REJECTION [None]
